FAERS Safety Report 23295028 (Version 2)
Quarter: 2024Q1

REPORT INFORMATION
  Report Type: Report from Study
  Country: CA (occurrence: CA)
  Receive Date: 20231213
  Receipt Date: 20240229
  Transmission Date: 20240409
  Serious: Yes (Other)
  Sender: FDA-Public Use
  Company Number: CA-JNJFOC-20231209366

PATIENT
  Sex: Female

DRUGS (1)
  1. STELARA [Suspect]
     Active Substance: USTEKINUMAB
     Indication: Product used for unknown indication
     Route: 058

REACTIONS (2)
  - Abdominal pain [Recovering/Resolving]
  - Drug ineffective [Unknown]
